FAERS Safety Report 7546815-2 (Version None)
Quarter: 2011Q2

REPORT INFORMATION
  Report Type: 
  Country: None (occurrence: None)
  Receive Date: 20110614
  Receipt Date: 20110608
  Transmission Date: 20111010
  Serious: Yes (Hospitalization, Other)
  Sender: FDA-Public Use
  Company Number: AU-ROCHE-779856

PATIENT
  Sex: Male
  Weight: 80 kg

DRUGS (1)
  1. AVASTIN [Suspect]
     Indication: COLORECTAL CANCER METASTATIC
     Route: 042
     Dates: start: 20100301, end: 20110528

REACTIONS (3)
  - PULMONARY EMBOLISM [None]
  - DISEASE PROGRESSION [None]
  - COLORECTAL CANCER [None]
